FAERS Safety Report 18767065 (Version 1)
Quarter: 2021Q1

REPORT INFORMATION
  Report Type: Spontaneous
  Country: FR (occurrence: FR)
  Receive Date: 20210121
  Receipt Date: 20210121
  Transmission Date: 20210419
  Serious: Yes (Death, Life-Threatening)
  Sender: FDA-Public Use
  Company Number: FR-TEVA-2021-FR-1871193

PATIENT
  Age: 39 Year
  Sex: Female
  Weight: 14 kg

DRUGS (11)
  1. METHYLPREDNISOLONE MYLAN [Concomitant]
     Active Substance: METHYLPREDNISOLONE
     Indication: CHEMOTHERAPY
     Dosage: 20 MG
     Route: 042
     Dates: start: 20201112, end: 20201112
  2. TRUXIMA [Suspect]
     Active Substance: RITUXIMAB-ABBS
     Indication: B-CELL LYMPHOMA
     Dosage: 250 MG
     Route: 042
     Dates: start: 20201112, end: 20201112
  3. VANCOMYCINE MYLAN 500 MG, POUDRE POUR SOLUTION POUR PERFUSION (IV) [Concomitant]
     Active Substance: VANCOMYCIN HYDROCHLORIDE
     Indication: ENTEROBACTER SEPSIS
     Route: 042
     Dates: start: 20201102, end: 20201112
  4. GEMCITABINE ACCORD [Suspect]
     Active Substance: GEMCITABINE HYDROCHLORIDE
     Indication: B-CELL LYMPHOMA
     Dosage: 60 MG
     Route: 042
     Dates: start: 20201112, end: 20201112
  5. BACTRIM [Concomitant]
     Active Substance: SULFAMETHOXAZOLE\TRIMETHOPRIM
     Indication: PROPHYLAXIS
     Dosage: 1 PHARMACEUTICAL FORM 3 TIMES PER WEEK
     Route: 048
  6. POLARAMINE [Concomitant]
     Active Substance: DEXCHLORPHENIRAMINE MALEATE
     Indication: CHEMOTHERAPY
     Dosage: 10 MG
     Route: 042
     Dates: start: 20201112, end: 20201112
  7. AMBISOME [Concomitant]
     Active Substance: AMPHOTERICIN B
     Indication: ASPERGILLUS INFECTION
     Route: 042
     Dates: start: 20201030, end: 20201113
  8. OMEPRAZOLE MYLAN 40 MG, POUDRE POUR SOLUTION POUR PERFUSION [Concomitant]
     Active Substance: OMEPRAZOLE
     Indication: PRODUCT USED FOR UNKNOWN INDICATION
     Dosage: 10 MG
     Route: 042
  9. MEROPENEM PANPHARMA [Concomitant]
     Active Substance: MEROPENEM
     Indication: ENTEROBACTER SEPSIS
     Route: 042
     Dates: start: 20201111, end: 20201112
  10. OXALIPLATINE [Suspect]
     Active Substance: OXALIPLATIN
     Indication: B-CELL LYMPHOMA
     Dosage: 60 MG
     Route: 042
     Dates: start: 20201112, end: 20201112
  11. ZOPHREN [Concomitant]
     Active Substance: ONDANSETRON
     Indication: CHEMOTHERAPY
     Dosage: 8 MG
     Route: 042
     Dates: start: 20201112, end: 20201112

REACTIONS (1)
  - Posterior reversible encephalopathy syndrome [Recovered/Resolved]

NARRATIVE: CASE EVENT DATE: 20201112
